FAERS Safety Report 4365606-7 (Version None)
Quarter: 2004Q2

REPORT INFORMATION
  Report Type: 
  Country: None (occurrence: None)
  Receive Date: 20040526
  Receipt Date: 20040518
  Transmission Date: 20050107
  Serious: Yes (Death)
  Sender: FDA-Public Use
  Company Number: BE-MERCK-0405BEL00029

PATIENT
  Age: 55 Year
  Sex: Male
  Weight: 45 kg

DRUGS (5)
  1. AMPHOTERICIN B [Concomitant]
     Indication: FUNGAL INFECTION
     Route: 042
     Dates: start: 20031121, end: 20031203
  2. CANCIDAS [Suspect]
     Indication: FUNGAL INFECTION
     Route: 042
     Dates: start: 20031203, end: 20031203
  3. CANCIDAS [Suspect]
     Route: 042
     Dates: start: 20031204, end: 20040226
  4. CYCLOSPORINE [Concomitant]
     Indication: IMMUNOSUPPRESSION
     Route: 048
  5. FLUCONAZOLE [Concomitant]
     Indication: ANTIFUNGAL PROPHYLAXIS
     Route: 042
     Dates: start: 20031030, end: 20031120

REACTIONS (2)
  - DEATH [None]
  - FUNGAL INFECTION [None]
